FAERS Safety Report 22104124 (Version 1)
Quarter: 2023Q1

REPORT INFORMATION
  Report Type: Spontaneous
  Country: FR (occurrence: FR)
  Receive Date: 20230316
  Receipt Date: 20230316
  Transmission Date: 20230418
  Serious: Yes (Life-Threatening, Hospitalization, Other)
  Sender: FDA-Public Use
  Company Number: None

PATIENT
  Sex: Male
  Weight: 2.23 kg

DRUGS (18)
  1. OPTIRAY 350 [Suspect]
     Active Substance: IOVERSOL
     Indication: Computerised tomogram head
     Route: 064
     Dates: start: 20170428, end: 20170428
  2. CLOBAZAM [Suspect]
     Active Substance: CLOBAZAM
     Indication: Product used for unknown indication
     Dosage: THERAPY START DATE- 15-MAY-2017?THERAPY END DATE- 14-JUN-2017
     Route: 064
     Dates: start: 2017, end: 2017
  3. CHOLECALCIFEROL [Suspect]
     Active Substance: CHOLECALCIFEROL
     Indication: Product used for unknown indication
     Dosage: THERAPY START DATE- 22-MAY-2017?THERAPY END DATE- 22-MAY-2017
     Route: 064
     Dates: start: 2017, end: 2017
  4. CEFIXIME [Suspect]
     Active Substance: CEFIXIME
     Indication: Product used for unknown indication
     Dosage: THERAPY START DATE- 15-MAY-2017?THERAPY END DATE- 22-MAY-2017
     Route: 064
     Dates: start: 2017, end: 2017
  5. NOREPINEPHRINE [Suspect]
     Active Substance: NOREPINEPHRINE
     Indication: Product used for unknown indication
     Dosage: APRIL-MAY 2017
     Route: 064
  6. MOVICOL [Suspect]
     Active Substance: POLYETHYLENE GLYCOL 3350\POTASSIUM CHLORIDE\SODIUM BICARBONATE\SODIUM CHLORIDE
     Indication: Product used for unknown indication
     Dosage: THERAPY START DATE- 15-MAY-2017?THERAPY END DATE-14-JUN-2017
     Route: 064
     Dates: start: 2017, end: 2017
  7. NIMOTOP [Suspect]
     Active Substance: NIMODIPINE
     Indication: Product used for unknown indication
     Dosage: DURING MAY-JUNE 2017
     Route: 064
  8. BETAMETHASONE [Suspect]
     Active Substance: BETAMETHASONE
     Indication: Threatened labour
     Dosage: THERAPY START DATE- 02-MAY-2017?THERAPY END DATE- 03-MAY-2017
     Route: 064
     Dates: start: 2017, end: 2017
  9. DUPHALAC [Suspect]
     Active Substance: LACTULOSE
     Indication: Product used for unknown indication
     Dosage: THERAPY START DATE- 23-MAY-2017?THERAPY END DATE- 22-JUN-2017
     Route: 064
     Dates: start: 2017, end: 2017
  10. PRIMPERAN [Suspect]
     Active Substance: METOCLOPRAMIDE HYDROCHLORIDE
     Indication: Product used for unknown indication
     Dosage: THERAPY START DATE- 29-JUN-2017?THERAPY END DATE- 09-AUG-2017
     Route: 064
     Dates: start: 2017, end: 2017
  11. PRIMPERAN [Suspect]
     Active Substance: METOCLOPRAMIDE HYDROCHLORIDE
     Route: 064
     Dates: start: 20170515, end: 20170520
  12. PIPERACILLIN SODIUM [Suspect]
     Active Substance: PIPERACILLIN SODIUM
     Indication: Product used for unknown indication
     Dosage: THERAPY START DATE- 03-MAY-2017?THERAPY END DATE- 10-MAY-2017
     Route: 064
     Dates: start: 2017, end: 2017
  13. PIPERACILLIN SODIUM [Suspect]
     Active Substance: PIPERACILLIN SODIUM
     Dosage: 4 G TID
     Route: 064
     Dates: start: 20170602, end: 20170611
  14. POTASSIUM CHLORIDE [Suspect]
     Active Substance: POTASSIUM CHLORIDE
     Indication: Product used for unknown indication
     Dosage: 3 DF IN THE MORNING, 2 DF AT LUNCH AND 3 DF IN THE EVENING?THERAPY START DATE- 15-MAY-2017?THERAPY E
     Route: 064
     Dates: start: 2017, end: 2017
  15. POTASSIUM CHLORIDE [Suspect]
     Active Substance: POTASSIUM CHLORIDE
     Dosage: 2 DF IN THE MORNING AND 2 DF IN THE EVENING
     Route: 064
     Dates: start: 20170525, end: 20170629
  16. SUFENTANIL [Suspect]
     Active Substance: SUFENTANIL
     Indication: Sedation
     Route: 064
     Dates: start: 20170428, end: 20170503
  17. MIDAZOLAM [Suspect]
     Active Substance: MIDAZOLAM
     Indication: Sedation
     Route: 064
     Dates: start: 20170428, end: 20170503
  18. LOVENOX [Suspect]
     Active Substance: ENOXAPARIN SODIUM
     Indication: Product used for unknown indication
     Dosage: THERAPY START DATE-15-MAY-2017?THERAPY END DATE- 24-MAY-2017
     Route: 064
     Dates: start: 2017, end: 2017

REACTIONS (4)
  - Foetal exposure during pregnancy [Recovered/Resolved]
  - Neonatal respiratory distress syndrome [Recovered/Resolved]
  - Premature baby [Recovered/Resolved]
  - Low birth weight baby [Unknown]

NARRATIVE: CASE EVENT DATE: 20170428
